FAERS Safety Report 8602727-4 (Version None)
Quarter: 2012Q3

REPORT INFORMATION
  Report Type: 
  Country: None (occurrence: None)
  Receive Date: 20120817
  Receipt Date: 20120815
  Transmission Date: 20120928
  Serious: Yes (Other)
  Sender: FDA-Public Use
  Company Number: US-BAYER-2012-070508

PATIENT
  Age: 59 Year
  Sex: Female
  Weight: 77.098 kg

DRUGS (2)
  1. GADAVIST [Suspect]
     Indication: HEADACHE
  2. GADAVIST [Suspect]
     Indication: NUCLEAR MAGNETIC RESONANCE IMAGING BRAIN
     Dosage: UNK
     Route: 042
     Dates: start: 20120629, end: 20120629

REACTIONS (4)
  - CONJUNCTIVITIS [None]
  - NAUSEA [None]
  - COUGH [None]
  - OROPHARYNGEAL DISCOMFORT [None]
